FAERS Safety Report 21126175 (Version 1)
Quarter: 2022Q3

REPORT INFORMATION
  Report Type: Spontaneous
  Country: US (occurrence: US)
  Receive Date: 20220725
  Receipt Date: 20220725
  Transmission Date: 20221026
  Serious: Yes (Hospitalization, Other)
  Sender: FDA-Public Use
  Company Number: US-ELI_LILLY_AND_COMPANY-US202207006866

PATIENT
  Age: 61 Year
  Sex: Female

DRUGS (3)
  1. HUMALOG [Suspect]
     Active Substance: INSULIN LISPRO
     Indication: Diabetes mellitus
     Dosage: 8 U, TID
     Route: 058
     Dates: start: 20220506
  2. HUMALOG [Suspect]
     Active Substance: INSULIN LISPRO
     Dosage: 8 U, TID
     Route: 058
     Dates: start: 20220506
  3. BASAGLAR [Suspect]
     Active Substance: INSULIN GLARGINE
     Indication: Diabetes mellitus
     Dosage: 34 U, UNKNOWN
     Route: 058
     Dates: start: 20220506

REACTIONS (3)
  - Hepatic enzyme increased [Unknown]
  - Pancreatic mass [Unknown]
  - Macular degeneration [Unknown]

NARRATIVE: CASE EVENT DATE: 20220601
